FAERS Safety Report 7690957-8 (Version None)
Quarter: 2011Q3

REPORT INFORMATION
  Report Type: 
  Country: None (occurrence: None)
  Receive Date: 20110812
  Receipt Date: 20110728
  Transmission Date: 20111222
  Serious: Yes (Life-Threatening, Hospitalization, Other)
  Sender: FDA-Public Use
  Company Number: 2011MA008593

PATIENT
  Age: 22 Year
  Sex: Female

DRUGS (12)
  1. VALPROIC ACID [Concomitant]
  2. METRONIDAZOLE [Concomitant]
  3. CLONAZEPAM [Concomitant]
  4. ACETAMINOPHEN [Concomitant]
  5. LEVETIRACETAM [Concomitant]
  6. MIDAZOLAM HCL [Concomitant]
  7. ACYCLOVIR [Concomitant]
  8. DIAZEPAM [Concomitant]
  9. PHENYTOIN [Suspect]
     Indication: DYSPHORIA
     Dosage: 60 MCG/ML
  10. PHENYTOIN [Suspect]
     Indication: CONVULSION
     Dosage: 60 MCG/ML
  11. PHENYTOIN [Suspect]
     Indication: HALLUCINATION
     Dosage: 60 MCG/ML
  12. THIOPENTAL SODIUM [Concomitant]

REACTIONS (19)
  - XANTHOCHROMIA [None]
  - JAUNDICE [None]
  - GALLBLADDER DISORDER [None]
  - GAMMA-GLUTAMYLTRANSFERASE INCREASED [None]
  - FUNGAL INFECTION [None]
  - DYSPHORIA [None]
  - HEPATIC FUNCTION ABNORMAL [None]
  - COMA [None]
  - TOTAL BILE ACIDS INCREASED [None]
  - REFLEXES ABNORMAL [None]
  - MUSCULAR WEAKNESS [None]
  - HYPOTONIA [None]
  - LIVER DISORDER [None]
  - ALANINE AMINOTRANSFERASE INCREASED [None]
  - STATUS EPILEPTICUS [None]
  - MYDRIASIS [None]
  - BLOOD ALKALINE PHOSPHATASE INCREASED [None]
  - LUNG INFECTION [None]
  - BEDRIDDEN [None]
